FAERS Safety Report 10286016 (Version 1)
Quarter: 2014Q3

REPORT INFORMATION
  Report Type: Spontaneous
  Country: US (occurrence: None)
  Receive Date: 20140703
  Receipt Date: 20140703
  Transmission Date: 20150326
  Serious: Yes (Disabling)
  Sender: FDA-Public Use
  Company Number: None

PATIENT
  Age: 40 Year
  Sex: Male
  Weight: 102.06 kg

DRUGS (3)
  1. TRAMADOL 50 MG ZYDUS [Suspect]
     Active Substance: TRAMADOL
     Indication: CROHN^S DISEASE
     Dosage: 1 PILL  EVERY 6 HOURS  TAKEN BY MOUTH
     Route: 048
     Dates: start: 20130404, end: 20130425
  2. TRAMADOL 50 MG ZYDUS [Suspect]
     Active Substance: TRAMADOL
     Indication: PAIN
     Dosage: 1 PILL  EVERY 6 HOURS  TAKEN BY MOUTH
     Route: 048
     Dates: start: 20130404, end: 20130425
  3. TRAMADOL 50 MG ZYDUS [Suspect]
     Active Substance: TRAMADOL
     Indication: COLITIS ULCERATIVE
     Dosage: 1 PILL  EVERY 6 HOURS  TAKEN BY MOUTH
     Route: 048
     Dates: start: 20130404, end: 20130425

REACTIONS (1)
  - Tendon rupture [None]

NARRATIVE: CASE EVENT DATE: 20130719
